FAERS Safety Report 15630377 (Version 2)
Quarter: 2018Q4

REPORT INFORMATION
  Report Type: Spontaneous
  Country: SE (occurrence: SE)
  Receive Date: 20181118
  Receipt Date: 20181120
  Transmission Date: 20190205
  Serious: Yes (Other)
  Sender: FDA-Public Use
  Company Number: SE-JNJFOC-20181107781

PATIENT
  Sex: Female

DRUGS (2)
  1. IPREN CAPSULES SOFT 400MG 20PCS [Suspect]
     Active Substance: IBUPROFEN
     Indication: PYREXIA
     Dosage: 1 CAPSULE ONCE
     Route: 048
     Dates: start: 20181104, end: 20181104
  2. IPREN CAPSULES SOFT 400MG 20PCS [Suspect]
     Active Substance: IBUPROFEN
     Route: 048

REACTIONS (6)
  - Wrong technique in product usage process [Unknown]
  - Abdominal pain [Recovering/Resolving]
  - Dysgeusia [Recovering/Resolving]
  - Anaphylactic shock [Recovering/Resolving]
  - Headache [Recovering/Resolving]
  - Oral mucosal blistering [Not Recovered/Not Resolved]

NARRATIVE: CASE EVENT DATE: 20181104
